FAERS Safety Report 7166902-0 (Version None)
Quarter: 2010Q4

REPORT INFORMATION
  Report Type: 
  Country: None (occurrence: None)
  Receive Date: 20101216
  Receipt Date: 20101207
  Transmission Date: 20110411
  Serious: Yes (Other)
  Sender: FDA-Public Use
  Company Number: US-BAXTER-2009BH010943

PATIENT
  Age: 34 Week
  Sex: Female
  Weight: 2 kg

DRUGS (1)
  1. DIANEAL [Suspect]
     Indication: ACCIDENTAL EXPOSURE
     Route: 015
     Dates: start: 20080801

REACTIONS (3)
  - DRUG EXPOSURE DURING PREGNANCY [None]
  - MATERNAL DRUGS AFFECTING FOETUS [None]
  - PREMATURE BABY [None]
